FAERS Safety Report 10009544 (Version 1)
Quarter: 2014Q1

REPORT INFORMATION
  Report Type: Spontaneous
  Country: US (occurrence: US)
  Receive Date: 20140312
  Receipt Date: 20140312
  Transmission Date: 20141002
  Serious: No
  Sender: FDA-Public Use
  Company Number: US-INCYTE CORPORATION-2012IN002009

PATIENT
  Age: 68 Year
  Sex: Male

DRUGS (4)
  1. JAKAFI [Suspect]
     Indication: MYELOFIBROSIS
     Dosage: 15 MG, BID
     Route: 048
     Dates: start: 20120917
  2. ASPIRIN [Concomitant]
     Dosage: 81 MG, UNK
  3. VITAMIN D [Concomitant]
  4. ZYRTEC [Concomitant]

REACTIONS (3)
  - Gout [Unknown]
  - Flatulence [Unknown]
  - Headache [Unknown]
